FAERS Safety Report 14653045 (Version 2)
Quarter: 2019Q2

REPORT INFORMATION
  Report Type: Report from Study
  Country: US (occurrence: US)
  Receive Date: 20180319
  Receipt Date: 20190408
  Transmission Date: 20190711
  Serious: No
  Sender: FDA-Public Use
  Company Number: US-CELGENEUS-USA-20171102402

PATIENT
  Age: 79 Year
  Sex: Male
  Weight: 65.6 kg

DRUGS (2)
  1. VIDAZA [Suspect]
     Active Substance: AZACITIDINE
     Dosage: 135 MILLIGRAM
     Route: 058
     Dates: start: 20151215, end: 20151222
  2. VIDAZA [Suspect]
     Active Substance: AZACITIDINE
     Indication: MYELODYSPLASTIC SYNDROME
     Dosage: 132.5 MILLIGRAM
     Route: 058
     Dates: start: 20150310, end: 20150313

REACTIONS (2)
  - Confusional state [Recovered/Resolved]
  - Diarrhoea [Recovered/Resolved]

NARRATIVE: CASE EVENT DATE: 20150313
